FAERS Safety Report 12256992 (Version 3)
Quarter: 2017Q1

REPORT INFORMATION
  Report Type: Spontaneous
  Country: US (occurrence: US)
  Receive Date: 20160412
  Receipt Date: 20170102
  Transmission Date: 20170428
  Serious: No
  Sender: FDA-Public Use
  Company Number: US-TEVA-649385USA

PATIENT
  Age: 65 Year
  Sex: Male
  Weight: 108.96 kg

DRUGS (18)
  1. COMPAZINE [Concomitant]
     Active Substance: PROCHLORPERAZINE MALEATE
     Indication: NAUSEA
     Dosage: 20 MILLIGRAM DAILY; AS NEEDED
  2. EYLEA [Concomitant]
     Active Substance: AFLIBERCEPT
     Indication: DIABETIC NEUROPATHY
  3. COLACE [Concomitant]
     Active Substance: DOCUSATE SODIUM
     Indication: FAECES HARD
     Dosage: 200 MILLIGRAM DAILY; 1 IN AM AND 1 IN PM
  4. TYLENOL [Concomitant]
     Active Substance: ACETAMINOPHEN
     Dosage: NOT MORE THAN 2000MG IN A 24 HR PERIOD.
  5. HUMULIN R 500 [Concomitant]
     Indication: DIABETES MELLITUS
  6. METOLAZONE. [Concomitant]
     Active Substance: METOLAZONE
     Dosage: 1.0714 MILLIGRAM DAILY; 1 ON MONDAY, WED AND FRIDAY.
  7. DULOXETINE DR [Concomitant]
     Active Substance: DULOXETINE
     Dosage: 60 MILLIGRAM DAILY;
  8. FUROSEMIDE. [Concomitant]
     Active Substance: FUROSEMIDE
     Dosage: 160 MILLIGRAM DAILY;
  9. POTASSIUM CHLORIDE. [Concomitant]
     Active Substance: POTASSIUM CHLORIDE
     Dosage: 80 MILLIEQUIVALENTS DAILY; 2 IN MORNING AND 2 IN EVENING
  10. ALLOPURINOL. [Concomitant]
     Active Substance: ALLOPURINOL
     Dosage: 200 MILLIGRAM DAILY;
  11. ENTERIC COATED ASPIRIN [Concomitant]
     Active Substance: ASPIRIN
     Dosage: 325 MILLIGRAM DAILY;
  12. EYLEA [Concomitant]
     Active Substance: AFLIBERCEPT
     Indication: MACULAR OEDEMA
  13. GLEEVEC [Concomitant]
     Active Substance: IMATINIB MESYLATE
     Dosage: 200 MILLIGRAM DAILY;
  14. SYNRIBO [Suspect]
     Active Substance: OMACETAXINE MEPESUCCINATE
     Indication: CHRONIC MYELOID LEUKAEMIA
     Dosage: 7 MILLIGRAM/MILLILITERS DAILY; HOME ADMINISTRATION
     Dates: start: 20160328, end: 20160401
  15. CARVEDILOL. [Concomitant]
     Active Substance: CARVEDILOL
     Dosage: 25 MILLIGRAM DAILY;
  16. AMLODIPINE [Concomitant]
     Active Substance: AMLODIPINE BESYLATE
  17. ATORVASTATIN [Concomitant]
     Active Substance: ATORVASTATIN
     Dosage: 40 MILLIGRAM DAILY; 1 TABLET AFTER EVERY MEAL.
  18. MULTIVITAMIN [Concomitant]
     Active Substance: VITAMINS

REACTIONS (32)
  - Dyspepsia [Recovering/Resolving]
  - Feeling cold [Recovering/Resolving]
  - Oropharyngeal pain [Recovering/Resolving]
  - Headache [Recovering/Resolving]
  - Somnolence [Recovering/Resolving]
  - Decreased appetite [Recovering/Resolving]
  - Injection site erythema [Recovering/Resolving]
  - Epistaxis [Recovering/Resolving]
  - Neck pain [Recovering/Resolving]
  - Injection site bruising [Recovering/Resolving]
  - Nausea [Recovering/Resolving]
  - Swelling face [Recovering/Resolving]
  - Blood glucose decreased [Unknown]
  - Nervousness [Recovering/Resolving]
  - Abdominal distension [Recovering/Resolving]
  - Abdominal discomfort [Recovered/Resolved]
  - Diarrhoea [Recovered/Resolved]
  - Malaise [Recovering/Resolving]
  - Burning sensation [Recovering/Resolving]
  - Dyspnoea [Recovering/Resolving]
  - Sensory disturbance [Recovered/Resolved]
  - Feeling hot [Recovering/Resolving]
  - Pain [Recovering/Resolving]
  - Fatigue [Recovering/Resolving]
  - Asthenia [Recovering/Resolving]
  - Vomiting [Recovering/Resolving]
  - Back pain [Recovering/Resolving]
  - Tremor [Recovered/Resolved]
  - Neck pain [Recovered/Resolved]
  - Hyperhidrosis [Recovering/Resolving]
  - Body temperature abnormal [Recovering/Resolving]
  - Blood glucose increased [Recovered/Resolved]

NARRATIVE: CASE EVENT DATE: 20160328
